FAERS Safety Report 21423025 (Version 1)
Quarter: 2022Q4

REPORT INFORMATION
  Report Type: Report from Study
  Country: US (occurrence: US)
  Receive Date: 20221007
  Receipt Date: 20221007
  Transmission Date: 20230113
  Serious: No
  Sender: FDA-Public Use
  Company Number: US-ABBVIE-4136604

PATIENT
  Age: 53 Year
  Sex: Female

DRUGS (4)
  1. RINVOQ [Suspect]
     Active Substance: UPADACITINIB
     Indication: Psoriatic arthropathy
     Route: 048
     Dates: start: 20220903
  2. OTEZLA 28 DAY START PAK [Concomitant]
     Indication: Product used for unknown indication
  3. SIMPONI 50 MG/0.5ML SMARTJET [Concomitant]
     Indication: Product used for unknown indication
  4. OTEZLA 30 MG TAB [Concomitant]
     Indication: Product used for unknown indication

REACTIONS (2)
  - Headache [Unknown]
  - Acne [Unknown]

NARRATIVE: CASE EVENT DATE: 20220901
